FAERS Safety Report 8968268 (Version 1)
Quarter: 2012Q4

REPORT INFORMATION
  Report Type: 
  Country: CO (occurrence: CO)
  Receive Date: 20121217
  Receipt Date: 20121217
  Transmission Date: 20130627
  Serious: Yes (Death)
  Sender: FDA-Public Use
  Company Number: CO-ROCHE-1170056

PATIENT
  Age: 25 Year
  Sex: Female
  Weight: 34.05 kg

DRUGS (4)
  1. LUCENTIS [Suspect]
     Indication: PRODUCT USED FOR UNKNOWN INDICATION
     Route: 050
     Dates: start: 20120321
  2. LOSARTAN [Concomitant]
  3. INSULIN [Concomitant]
  4. CALCITRIOL [Concomitant]

REACTIONS (1)
  - Cardiac arrest [Fatal]
